FAERS Safety Report 12883398 (Version 8)
Quarter: 2017Q1

REPORT INFORMATION
  Report Type: Report from Study
  Country: None (occurrence: BE)
  Receive Date: 20161025
  Receipt Date: 20170117
  Transmission Date: 20170428
  Serious: Yes (Hospitalization, Other)
  Sender: FDA-Public Use
  Company Number: BE-ABBVIE-16P-013-1758460-00

PATIENT
  Age: 78 Year
  Sex: Male

DRUGS (5)
  1. DUODOPA [Suspect]
     Active Substance: CARBIDOPA\LEVODOPA
     Dosage: AM=3ML??CD=3.8ML/HR DURING 16HRS??ED=1.5ML??ND=2.4ML/HR DURING 8HRS
     Route: 050
     Dates: start: 20161018, end: 20161019
  2. DUODOPA [Suspect]
     Active Substance: CARBIDOPA\LEVODOPA
     Dosage: AM=5ML??CD=4.4ML/HR DURING 16HRS??ED=2ML??ND=3.6ML/HR DURING 8HRS
     Route: 050
     Dates: start: 20161019, end: 201610
  3. DUODOPA [Suspect]
     Active Substance: CARBIDOPA\LEVODOPA
     Dosage: AM= 5 ML; CD= 4.2 ML/H DURING 16 HRS; ED= 2 ML
     Route: 050
     Dates: start: 20170110
  4. DUODOPA [Suspect]
     Active Substance: CARBIDOPA\LEVODOPA
     Indication: PARKINSON^S DISEASE
     Dosage: AM=6.5ML??CD=3.4ML/HR DURING 16HRS??ED=1.5ML
     Route: 050
     Dates: start: 20161013, end: 20161018
  5. DUODOPA [Suspect]
     Active Substance: CARBIDOPA\LEVODOPA
     Dosage: AM= 5ML; CD= 4.4 ML/H DURING 16 HRS; ND= 3.6 ML/H DURING 8 HRS; ED= 2 ML
     Route: 050
     Dates: start: 201610, end: 20170110

REACTIONS (4)
  - Pneumonia [Recovering/Resolving]
  - Dysphagia [Recovered/Resolved]
  - Diet refusal [Recovered/Resolved]
  - Asthenia [Unknown]

NARRATIVE: CASE EVENT DATE: 201610
